FAERS Safety Report 20075767 (Version 1)
Quarter: 2021Q4

REPORT INFORMATION
  Report Type: Spontaneous
  Country: US (occurrence: None)
  Receive Date: 20211115
  Receipt Date: 20211115
  Transmission Date: 20220303
  Serious: No
  Sender: FDA-Public Use
  Company Number: None

PATIENT
  Sex: Male

DRUGS (1)
  1. DROXIDOPA [Suspect]
     Active Substance: DROXIDOPA
     Indication: Orthostatic hypotension
     Dosage: FREQUENCY : DAILY;?
     Route: 048
     Dates: start: 20210526, end: 20211111

REACTIONS (1)
  - Rash [None]

NARRATIVE: CASE EVENT DATE: 20211101
